FAERS Safety Report 8230423-4 (Version None)
Quarter: 2012Q1

REPORT INFORMATION
  Report Type: 
  Country: None (occurrence: None)
  Receive Date: 20120322
  Receipt Date: 20120322
  Transmission Date: 20120608
  Serious: No
  Sender: FDA-Public Use
  Company Number: None

PATIENT
  Sex: Female

DRUGS (2)
  1. CIPROFLOXACIN [Suspect]
  2. PHENAZOPYRIDINE HCL TAB [Suspect]

REACTIONS (3)
  - DRUG DISPENSING ERROR [None]
  - WRONG DRUG ADMINISTERED [None]
  - MEDICATION ERROR [None]
